FAERS Safety Report 15120050 (Version 1)
Quarter: 2018Q3

REPORT INFORMATION
  Report Type: Spontaneous
  Country: IT (occurrence: IT)
  Receive Date: 20180709
  Receipt Date: 20180709
  Transmission Date: 20181010
  Serious: Yes (Death)
  Sender: FDA-Public Use
  Company Number: PHHY2018IT040112

PATIENT
  Age: 59 Year
  Sex: Male
  Weight: 69 kg

DRUGS (1)
  1. EVEROLIMUS. [Suspect]
     Active Substance: EVEROLIMUS
     Indication: NEOPLASM MALIGNANT
     Dosage: 10 MG, UNK
     Route: 048
     Dates: start: 20170907, end: 20180226

REACTIONS (5)
  - Malaise [Fatal]
  - Asthenia [Fatal]
  - Flank pain [Fatal]
  - Hypoxia [Fatal]
  - Pleural effusion [Fatal]

NARRATIVE: CASE EVENT DATE: 20180226
